FAERS Safety Report 10055117 (Version 1)
Quarter: 2014Q2

REPORT INFORMATION
  Report Type: Spontaneous
  Country: US (occurrence: US)
  Receive Date: 20140402
  Receipt Date: 20140402
  Transmission Date: 20141212
  Serious: No
  Sender: FDA-Public Use
  Company Number: US-SA-2014SA015946

PATIENT
  Sex: Female
  Weight: 77 kg

DRUGS (11)
  1. AUBAGIO [Suspect]
     Indication: MULTIPLE SCLEROSIS
     Route: 048
     Dates: start: 201310
  2. BOTOX [Concomitant]
  3. SYNTHROID [Concomitant]
  4. SIMVASTATIN [Concomitant]
  5. PRIMIDONE [Concomitant]
  6. WELLBUTRIN [Concomitant]
  7. PRILOSEC [Concomitant]
  8. IBUPROFEN [Concomitant]
  9. MILNACIPRAN [Concomitant]
  10. TOPAMAX [Concomitant]
  11. VITAMIN D [Concomitant]

REACTIONS (1)
  - Alopecia [Unknown]
